FAERS Safety Report 6128393-8 (Version None)
Quarter: 2009Q1

REPORT INFORMATION
  Report Type: 
  Country: None (occurrence: None)
  Receive Date: 20090323
  Receipt Date: 20090310
  Transmission Date: 20090719
  Serious: Yes (Other)
  Sender: FDA-Public Use
  Company Number: AU-ROCHE-620356

PATIENT
  Sex: Female

DRUGS (3)
  1. MYCOPHENOLATE MOFETIL [Suspect]
     Indication: DRUG USE FOR UNKNOWN INDICATION
     Route: 065
  2. ARANESP [Suspect]
     Route: 065
  3. CYCLOPHOSPHAMIDE [Concomitant]

REACTIONS (1)
  - APLASIA PURE RED CELL [None]
